FAERS Safety Report 9332927 (Version 2)
Quarter: 2013Q3

REPORT INFORMATION
  Report Type: Spontaneous
  Country: DK (occurrence: None)
  Receive Date: 20130603
  Receipt Date: 20130716
  Transmission Date: 20140515
  Serious: Yes (Hospitalization)
  Sender: FDA-Public Use
  Company Number: ACO_36518_2013

PATIENT
  Sex: Female

DRUGS (2)
  1. FAMPYRA [Suspect]
     Indication: GAIT DISTURBANCE
     Route: 048
     Dates: start: 20120611, end: 20130409
  2. GILENYA (FINGOLIMOD HYDROCHLORIDE) [Concomitant]

REACTIONS (6)
  - Vomiting in pregnancy [None]
  - Nausea [None]
  - Weight decreased [None]
  - Haemorrhage in pregnancy [None]
  - Pregnancy [None]
  - Exposure during pregnancy [None]
